FAERS Safety Report 24688724 (Version 3)
Quarter: 2025Q1

REPORT INFORMATION
  Report Type: Spontaneous
  Country: JP (occurrence: JP)
  Receive Date: 20241203
  Receipt Date: 20250324
  Transmission Date: 20250409
  Serious: Yes (Death, Hospitalization)
  Sender: JOHNSON AND JOHNSON
  Company Number: JP-NShinyaku-EVA20240820401001307081

PATIENT
  Age: 9 Decade
  Sex: Male

DRUGS (4)
  1. SELEXIPAG [Suspect]
     Active Substance: SELEXIPAG
     Indication: Pulmonary arterial hypertension
     Route: 048
     Dates: start: 20241001, end: 2024
  2. SELEXIPAG [Suspect]
     Active Substance: SELEXIPAG
     Route: 048
     Dates: start: 2024, end: 2024
  3. SELEXIPAG [Suspect]
     Active Substance: SELEXIPAG
     Route: 048
     Dates: start: 202411, end: 2024
  4. SELEXIPAG [Suspect]
     Active Substance: SELEXIPAG
     Route: 048
     Dates: start: 20240919

REACTIONS (7)
  - Hypoxia [Fatal]
  - Lung neoplasm malignant [Fatal]
  - Pulmonary function test decreased [Fatal]
  - Left ventricular failure [Recovering/Resolving]
  - Dyspnoea [Recovering/Resolving]
  - Respiratory disorder [Unknown]
  - Pulmonary congestion [Recovering/Resolving]

NARRATIVE: CASE EVENT DATE: 20241003
